FAERS Safety Report 6095438-3 (Version None)
Quarter: 2009Q1

REPORT INFORMATION
  Report Type: 
  Country: None (occurrence: None)
  Receive Date: 20090227
  Receipt Date: 20080402
  Transmission Date: 20090719
  Serious: No
  Sender: FDA-Public Use
  Company Number: A0718929A

PATIENT

DRUGS (1)
  1. LAMICTAL [Suspect]
     Dosage: 100MG UNKNOWN

REACTIONS (2)
  - EYE INFECTION [None]
  - RASH [None]
